FAERS Safety Report 8554652-5 (Version None)
Quarter: 2012Q3

REPORT INFORMATION
  Report Type: 
  Country: None (occurrence: None)
  Receive Date: 20120731
  Receipt Date: 20120723
  Transmission Date: 20120928
  Serious: Yes (Hospitalization)
  Sender: FDA-Public Use
  Company Number: US-JNJFOC-20120520467

PATIENT
  Sex: Male
  Weight: 57.6 kg

DRUGS (4)
  1. REMICADE [Suspect]
     Indication: CROHN'S DISEASE
     Route: 042
     Dates: start: 20111121
  2. METHOTREXATE [Concomitant]
  3. ANTIBIOTICS FOR IBD [Concomitant]
     Indication: INFLAMMATORY BOWEL DISEASE
  4. PREDNISONE [Concomitant]

REACTIONS (1)
  - CROHN'S DISEASE [None]
